FAERS Safety Report 8521571-X (Version None)
Quarter: 2012Q3

REPORT INFORMATION
  Report Type: 
  Country: None (occurrence: None)
  Receive Date: 20120719
  Receipt Date: 20120713
  Transmission Date: 20120928
  Serious: Yes (Other)
  Sender: FDA-Public Use
  Company Number: PHHY2012BR061089

PATIENT
  Age: 91 Year
  Sex: Female

DRUGS (9)
  1. ASCORBIC ACID [Concomitant]
  2. INDERAL LA [Concomitant]
     Indication: BLOOD PRESSURE
     Dosage: 2 DF, A DAY
  3. LEVOTHYROXINE SODIUM [Concomitant]
     Indication: THYROID DISORDER
     Dosage: 1 DF, UNK
  4. FOLIC ACID [Concomitant]
  5. EXJADE [Suspect]
     Indication: MYELODYSPLASTIC SYNDROME
     Route: 048
  6. ERYTHROPOIETIN HUMAN [Concomitant]
     Indication: MYELODYSPLASTIC SYNDROME
     Dosage: 1000 IU, 3 TIMES A WEEK
     Route: 058
  7. BENERVA [Concomitant]
     Dosage: 1 DF, DAILY
  8. OMEPRAZOLE [Concomitant]
     Dosage: 1 DF, UNK
  9. BAMIFIX [Concomitant]
     Indication: DYSPNOEA
     Dosage: 2 DF, 1 TABLET IN THE MORNING AND 1 TABLET AT NIGHT
     Route: 048

REACTIONS (5)
  - CHILLS [None]
  - PARKINSON'S DISEASE [None]
  - MYELODYSPLASTIC SYNDROME [None]
  - MALAISE [None]
  - SERUM FERRITIN INCREASED [None]
